FAERS Safety Report 22146616 (Version 3)
Quarter: 2023Q2

REPORT INFORMATION
  Report Type: Report from Study
  Country: CN (occurrence: CN)
  Receive Date: 20230328
  Receipt Date: 20230403
  Transmission Date: 20230721
  Serious: Yes (Death)
  Sender: FDA-Public Use
  Company Number: CN-PFIZER INC-PV202300054959

PATIENT
  Age: 66 Year
  Sex: Female
  Weight: 67 kg

DRUGS (1)
  1. XALKORI [Suspect]
     Active Substance: CRIZOTINIB
     Indication: Non-small cell lung cancer
     Dosage: 250 MG, 2X/DAY (BID) (NOT ONGOING)
     Route: 048
     Dates: start: 20191220

REACTIONS (1)
  - Death [Fatal]

NARRATIVE: CASE EVENT DATE: 20230317
